FAERS Safety Report 14224370 (Version 1)
Quarter: 2017Q4

REPORT INFORMATION
  Report Type: Spontaneous
  Country: US (occurrence: US)
  Receive Date: 20171126
  Receipt Date: 20171126
  Transmission Date: 20180321
  Serious: No
  Sender: FDA-Public Use
  Company Number: US-BIOGEN-2017BI00485784

PATIENT

DRUGS (1)
  1. AVONEX [Suspect]
     Active Substance: INTERFERON BETA-1A
     Indication: MULTIPLE SCLEROSIS
     Route: 065

REACTIONS (6)
  - Intentional product misuse [Unknown]
  - Irritability [Unknown]
  - Anxiety [Unknown]
  - Memory impairment [Unknown]
  - Multiple sclerosis [Unknown]
  - Depression [Not Recovered/Not Resolved]
